FAERS Safety Report 5841948-0 (Version None)
Quarter: 2008Q3

REPORT INFORMATION
  Report Type: 
  Country: None (occurrence: None)
  Receive Date: 20080812
  Receipt Date: 20080807
  Transmission Date: 20090109
  Serious: Yes (Other)
  Sender: FDA-Public Use
  Company Number: GB-MERCK-0808GBR00035

PATIENT
  Age: 86 Year
  Sex: Female
  Weight: 75 kg

DRUGS (11)
  1. FOSAMAX [Suspect]
     Indication: OSTEOPOROSIS PROPHYLAXIS
     Route: 048
     Dates: start: 20080613
  2. CALCIUM CARBONATE [Concomitant]
     Route: 065
     Dates: start: 20080613
  3. ASPIRIN [Concomitant]
     Route: 065
  4. CHLORPHENIRAMINE MALEATE [Concomitant]
     Route: 065
  5. FUROSEMIDE [Concomitant]
     Route: 065
  6. LATANOPROST [Concomitant]
     Route: 065
  7. OMEPRAZOLE [Concomitant]
     Route: 065
  8. PREDNISOLONE [Concomitant]
     Route: 065
  9. TIMOPTIC [Concomitant]
     Route: 065
  10. VERAPAMIL HYDROCHLORIDE [Concomitant]
     Route: 065
  11. LISINOPRIL [Concomitant]
     Route: 065

REACTIONS (1)
  - ATRIAL FIBRILLATION [None]
